FAERS Safety Report 6840279-X (Version None)
Quarter: 2010Q3

REPORT INFORMATION
  Report Type: 
  Country: None (occurrence: None)
  Receive Date: 20100714
  Receipt Date: 20100709
  Transmission Date: 20110219
  Serious: Yes (Other)
  Sender: FDA-Public Use
  Company Number: CHPA2010US11292

PATIENT
  Age: 85 Year
  Sex: Female
  Weight: 53.515 kg

DRUGS (1)
  1. BENEFIBER W/ WHEAT DEXTRIN (NCH) [Suspect]
     Indication: BOWEL MOVEMENT IRREGULARITY
     Dosage: 1 HEAPING TSP, QD
     Route: 048

REACTIONS (3)
  - CEREBROVASCULAR ACCIDENT [None]
  - DEFAECATION URGENCY [None]
  - FREQUENT BOWEL MOVEMENTS [None]
